FAERS Safety Report 14966834 (Version 1)
Quarter: 2018Q2

REPORT INFORMATION
  Report Type: Spontaneous
  Country: CN (occurrence: CN)
  Receive Date: 20180604
  Receipt Date: 20180604
  Transmission Date: 20180711
  Serious: Yes (Hospitalization)
  Sender: FDA-Public Use
  Company Number: CN-CHEPLA-1920494

PATIENT
  Age: 46 Year
  Sex: Male
  Weight: 102.5 kg

DRUGS (1)
  1. XENICAL [Suspect]
     Active Substance: ORLISTAT
     Indication: WEIGHT CONTROL
     Dosage: DURING MEALS OR AFTER AN HOUR OF MEAL; THERAPY START: END OF MAR/2017 ?
     Route: 048
     Dates: start: 201703, end: 20170406

REACTIONS (4)
  - Somnolence [Recovering/Resolving]
  - Hepatic function abnormal [Recovering/Resolving]
  - Fatigue [Recovering/Resolving]
  - Pruritus [Recovering/Resolving]

NARRATIVE: CASE EVENT DATE: 201704
